FAERS Safety Report 5964881-2 (Version None)
Quarter: 2008Q4

REPORT INFORMATION
  Report Type: 
  Country: None (occurrence: None)
  Receive Date: 20081124
  Receipt Date: 20081124
  Transmission Date: 20090506
  Serious: Yes (Other)
  Sender: FDA-Public Use
  Company Number: None

PATIENT
  Age: 42 Year
  Sex: Female
  Weight: 74.8435 kg

DRUGS (6)
  1. CYMBALTA [Suspect]
     Indication: FIBROMYALGIA
     Dosage: 30 MG 1 DAILY PO
     Route: 048
  2. CYMBALTA [Suspect]
     Indication: GENERALISED ANXIETY DISORDER
     Dosage: 30 MG 1 DAILY PO
     Route: 048
  3. CYMBALTA [Suspect]
     Indication: FIBROMYALGIA
     Dosage: 60 MG 1 DAILY PO
     Route: 048
  4. CYMBALTA [Suspect]
     Indication: GENERALISED ANXIETY DISORDER
     Dosage: 60 MG 1 DAILY PO
     Route: 048
  5. CYMBALTA [Suspect]
     Indication: FIBROMYALGIA
     Dosage: 90 MG 1 DAILY PO
     Route: 048
  6. CYMBALTA [Suspect]
     Indication: GENERALISED ANXIETY DISORDER
     Dosage: 90 MG 1 DAILY PO
     Route: 048

REACTIONS (8)
  - AGORAPHOBIA [None]
  - ANXIETY [None]
  - CONDITION AGGRAVATED [None]
  - ECONOMIC PROBLEM [None]
  - HALLUCINATION [None]
  - INADEQUATE ANALGESIA [None]
  - PANIC ATTACK [None]
  - SUICIDAL IDEATION [None]
